FAERS Safety Report 8738300 (Version 3)
Quarter: 2012Q4

REPORT INFORMATION
  Report Type: 
  Country: US (occurrence: US)
  Receive Date: 20120823
  Receipt Date: 20121107
  Transmission Date: 20130627
  Serious: No
  Sender: FDA-Public Use
  Company Number: US-009507513-1208USA000216

PATIENT
  Sex: Male

DRUGS (4)
  1. RIBAVIRIN [Suspect]
     Indication: HEPATITIS C
     Dosage: 1200 mg, qd
     Dates: start: 20120429
  2. RIBAVIRIN [Suspect]
     Dosage: 1000 mg, qd
     Route: 048
  3. VICTRELIS [Suspect]
     Indication: HEPATITIS C
     Dosage: UNK UNK, qw
  4. PEGINTERFERON ALFA-2A [Suspect]
     Indication: HEPATITIS C
     Dosage: 180 Microgram, qw
     Dates: start: 20120429

REACTIONS (4)
  - Fatigue [Unknown]
  - Influenza like illness [Unknown]
  - Anaemia [Unknown]
  - Viral load decreased [Unknown]
